FAERS Safety Report 8493691-X (Version None)
Quarter: 2012Q3

REPORT INFORMATION
  Report Type: 
  Country: None (occurrence: None)
  Receive Date: 20120706
  Receipt Date: 20120703
  Transmission Date: 20120928
  Serious: Yes (Other)
  Sender: FDA-Public Use
  Company Number: TR-GILEAD-2012-0057487

PATIENT

DRUGS (2)
  1. VIREAD [Suspect]
     Indication: PRODUCT USED FOR UNKNOWN INDICATION
     Route: 064
  2. VIREAD [Suspect]
     Dosage: UNK
     Route: 063

REACTIONS (2)
  - EXPOSURE DURING BREAST FEEDING [None]
  - NERVOUS SYSTEM DISORDER [None]
